FAERS Safety Report 14617407 (Version 1)
Quarter: 2018Q1

REPORT INFORMATION
  Report Type: Other
  Country: DE (occurrence: DE)
  Receive Date: 20180309
  Receipt Date: 20180309
  Transmission Date: 20180509
  Serious: Yes (Life-Threatening, Hospitalization)
  Sender: FDA-Public Use
  Company Number: DE-TAIHO ONCOLOGY INC-JPTT180200

PATIENT
  Age: 70 Year
  Sex: Female
  Weight: 100 kg

DRUGS (1)
  1. LONSURF [Suspect]
     Active Substance: TIPIRACIL HYDROCHLORIDE\TRIFLURIDINE
     Indication: COLON CANCER METASTATIC
     Dosage: UNK
     Route: 048

REACTIONS (8)
  - Lactic acidosis [Unknown]
  - Dialysis [Unknown]
  - Acute kidney injury [Unknown]
  - Hyperglycaemia [Unknown]
  - Pancreatitis [Unknown]
  - Hyperkalaemia [Unknown]
  - Sepsis [Unknown]
  - Disturbance in attention [Unknown]

NARRATIVE: CASE EVENT DATE: 20180103
